FAERS Safety Report 9160893 (Version 2)
Quarter: 2013Q2

REPORT INFORMATION
  Report Type: Spontaneous
  Country: JP (occurrence: JP)
  Receive Date: 20130313
  Receipt Date: 20130430
  Transmission Date: 20140414
  Serious: Yes (Hospitalization)
  Sender: FDA-Public Use
  Company Number: JP-PFIZER INC-2013080690

PATIENT
  Age: 82 Year
  Sex: Female

DRUGS (13)
  1. SEIBULE [Suspect]
     Dosage: 50 MG, 3X/DAY
     Route: 048
     Dates: start: 20120724, end: 20121006
  2. SEIBULE [Suspect]
     Dosage: 50 MG, 3X/DAY
     Route: 048
     Dates: start: 20130214, end: 20130215
  3. FEBUXOSTAT [Concomitant]
     Dosage: UNK
  4. ONEALFA [Concomitant]
     Dosage: UNK
  5. NESINA [Concomitant]
     Dosage: UNK
  6. PREDNISOLON [Concomitant]
     Dosage: UNK
  7. FAMOTIDINE [Concomitant]
     Dosage: UNK
  8. LOCHOL [Concomitant]
     Dosage: UNK
  9. CONIEL [Concomitant]
     Dosage: UNK
  10. PROMAC [Concomitant]
     Dosage: UNK
  11. BONALON [Concomitant]
     Dosage: UNK
  12. TANATRIL [Concomitant]
     Dosage: UNK
  13. METFORMIN HYDROCHLORIDE [Concomitant]
     Dosage: UNK

REACTIONS (1)
  - Hepatic enzyme increased [Recovered/Resolved]
